FAERS Safety Report 9286645 (Version 1)
Quarter: 2013Q2

REPORT INFORMATION
  Report Type: Spontaneous
  Country: CN (occurrence: CN)
  Receive Date: 20130513
  Receipt Date: 20130513
  Transmission Date: 20140414
  Serious: Yes (Other)
  Sender: FDA-Public Use
  Company Number: CN-ABBOTT-13X-035-1087930-00

PATIENT
  Age: 66 Year
  Sex: Female

DRUGS (5)
  1. DEPAKINE [Suspect]
     Indication: AFFECTIVE DISORDER
     Route: 048
     Dates: start: 20120730
  2. DEPAKINE [Suspect]
     Route: 048
     Dates: start: 20120717
  3. OLANZAPINE [Concomitant]
     Indication: PRODUCT USED FOR UNKNOWN INDICATION
  4. DONEPEZIL [Concomitant]
     Indication: PRODUCT USED FOR UNKNOWN INDICATION
  5. ESTAZOLAM [Concomitant]
     Indication: PRODUCT USED FOR UNKNOWN INDICATION

REACTIONS (2)
  - Asthenia [Recovered/Resolved]
  - Somnolence [Recovered/Resolved]
